FAERS Safety Report 5464759-7 (Version None)
Quarter: 2007Q3

REPORT INFORMATION
  Report Type: 
  Country: None (occurrence: None)
  Receive Date: 20070820
  Receipt Date: 20070626
  Transmission Date: 20080115
  Serious: No
  Sender: FDA-Public Use
  Company Number: TPA2007A01464

PATIENT
  Age: 34 Year
  Sex: Male
  Weight: 102.9665 kg

DRUGS (4)
  1. ROZEREM (RAMELTRON) [Suspect]
     Dosage: PER ORAL
     Route: 048
  2. LITHIUM CARBONATE [Concomitant]
  3. LEXAPRO [Concomitant]
  4. VICODIN [Concomitant]

REACTIONS (1)
  - DRUG INEFFECTIVE [None]
